FAERS Safety Report 8153059-2 (Version None)
Quarter: 2012Q1

REPORT INFORMATION
  Report Type: 
  Country: None (occurrence: None)
  Receive Date: 20120221
  Receipt Date: 20120216
  Transmission Date: 20120608
  Serious: Yes (Other)
  Sender: FDA-Public Use
  Company Number: US-PFIZER INC-2012042864

PATIENT
  Age: 58 Year
  Sex: Female
  Weight: 45.58 kg

DRUGS (1)
  1. LIPITOR [Suspect]
     Indication: BLOOD CHOLESTEROL INCREASED
     Dosage: 10 MG, DAILY

REACTIONS (3)
  - HAEMATURIA [None]
  - DRUG HYPERSENSITIVITY [None]
  - GALLBLADDER DISORDER [None]
